FAERS Safety Report 7368822-5 (Version None)
Quarter: 2011Q1

REPORT INFORMATION
  Report Type: 
  Country: None (occurrence: None)
  Receive Date: 20110323
  Receipt Date: 20100920
  Transmission Date: 20110831
  Serious: Yes (Hospitalization, Other)
  Sender: FDA-Public Use
  Company Number: US-BAYER-201021700NA

PATIENT
  Sex: Female
  Weight: 91 kg

DRUGS (11)
  1. YAZ [Suspect]
     Indication: MENSTRUAL CYCLE MANAGEMENT
  2. YASMIN [Suspect]
     Indication: CONTRACEPTION
     Route: 048
     Dates: start: 20060801, end: 20061001
  3. PROGESTERONE [Concomitant]
     Dosage: UNK
     Dates: start: 20060107
  4. AMBIEN [Concomitant]
  5. CITALOPRAM [Concomitant]
  6. NASONEX [Concomitant]
     Dosage: UNK
     Dates: start: 20020101
  7. IBUPROFEN [Concomitant]
     Dosage: UNK
     Dates: start: 20000101, end: 20060101
  8. YASMIN [Suspect]
     Indication: MENSTRUAL CYCLE MANAGEMENT
  9. SYNTHROID [Concomitant]
     Indication: HYPOTHYROIDISM
  10. THYROID TAB [Concomitant]
     Indication: HYPOTHYROIDISM
  11. YAZ [Suspect]
     Indication: CONTRACEPTION
     Route: 048
     Dates: start: 20060801, end: 20061001

REACTIONS (2)
  - DEEP VEIN THROMBOSIS [None]
  - PULMONARY EMBOLISM [None]
